FAERS Safety Report 9878589 (Version 2)
Quarter: 2014Q2

REPORT INFORMATION
  Report Type: Spontaneous
  Country: US (occurrence: US)
  Receive Date: 20140206
  Receipt Date: 20140604
  Transmission Date: 20141212
  Serious: Yes (Other)
  Sender: FDA-Public Use
  Company Number: US-BRISTOL-MYERS SQUIBB COMPANY-20111779

PATIENT
  Age: 67 Year
  Sex: Female
  Weight: 96.14 kg

DRUGS (25)
  1. BYETTA [Suspect]
     Dosage: INCREASED IN 2009 TO 10MCG BID
     Route: 058
     Dates: start: 200810
  2. JANUVIA [Suspect]
     Dates: start: 2001
  3. ACTOS [Concomitant]
     Dosage: TABS
     Route: 048
  4. CARVEDILOL [Concomitant]
     Dosage: TABS
     Route: 048
  5. DICYCLOMINE HCL [Concomitant]
     Dosage: CAPS
     Route: 048
  6. GLIMEPIRIDE [Concomitant]
     Dosage: TABS
     Route: 048
  7. GLUCOPHAGE [Concomitant]
     Dosage: TABS
     Route: 048
  8. HYDROCODONE + ACETAMINOPHEN [Concomitant]
     Dosage: TABS
     Route: 048
  9. HYDROMORPHONE HCL [Concomitant]
     Dosage: TABS
     Route: 048
  10. JANUVIA [Concomitant]
     Dosage: TABS
     Route: 048
  11. LEVOTHYROXINE SODIUM [Concomitant]
     Dosage: CAPS
     Route: 048
  12. LISINOPRIL [Concomitant]
     Dosage: TABS
     Route: 048
  13. MS CONTIN [Concomitant]
     Dosage: TABS
     Route: 048
  14. NAPROSYN [Concomitant]
     Dosage: TABS
     Route: 048
  15. NEXIUM [Concomitant]
     Dosage: CAPS,DELAYED RELEASE
     Route: 048
  16. SIMVASTATIN [Concomitant]
     Dosage: TABS
     Route: 048
  17. TRAMADOL HCL [Concomitant]
     Dosage: TABS
     Route: 048
  18. VITAMIN D [Concomitant]
     Route: 048
  19. CIPRO [Concomitant]
     Route: 048
  20. DEXAMETHASONE SODIUM PHOSPHATE [Concomitant]
  21. EMLA [Concomitant]
     Route: 061
  22. GEMCITABINE HCL [Concomitant]
     Route: 042
  23. ONDANSETRON HCL [Concomitant]
     Route: 042
  24. PACLITAXEL PROTEIN-BOUND PARTICLES [Concomitant]
     Route: 042
  25. PROMETHAZINE HCL [Concomitant]
     Route: 048

REACTIONS (1)
  - Pancreatic carcinoma [Unknown]
